FAERS Safety Report 4421966-X (Version None)
Quarter: 2004Q2

REPORT INFORMATION
  Report Type: 
  Country: None (occurrence: None)
  Receive Date: 20040609
  Receipt Date: 20030630
  Transmission Date: 20050107
  Serious: Yes (Other)
  Sender: FDA-Public Use
  Company Number: USA-2002-004102

PATIENT
  Age: 39 Year
  Sex: Female

DRUGS (1)
  1. ULTRAVIST 300 [Suspect]
     Indication: COMPUTERISED TOMOGRAM
     Dosage: 1 DOSE, INTRAVENOUS
     Route: 042
     Dates: start: 20020508, end: 20020508

REACTIONS (7)
  - ANXIETY [None]
  - BRONCHOSPASM [None]
  - COUGH [None]
  - DYSPNOEA [None]
  - PALPITATIONS [None]
  - THROAT IRRITATION [None]
  - THROAT TIGHTNESS [None]
